FAERS Safety Report 10742074 (Version 3)
Quarter: 2015Q3

REPORT INFORMATION
  Report Type: Report from Study
  Country: US (occurrence: US)
  Receive Date: 20150127
  Receipt Date: 20150716
  Transmission Date: 20151125
  Serious: Yes (Hospitalization, Other)
  Sender: FDA-Public Use
  Company Number: US-GILEAD-2015-0133399

PATIENT
  Age: 87 Year
  Sex: Female

DRUGS (1)
  1. AMBRISENTAN [Suspect]
     Active Substance: AMBRISENTAN
     Indication: PULMONARY ARTERIAL HYPERTENSION
     Dosage: 10 MG, QD
     Route: 065
     Dates: start: 20101028

REACTIONS (6)
  - Transient ischaemic attack [Unknown]
  - Cerebrovascular accident [Unknown]
  - Cough [Unknown]
  - Wound [Unknown]
  - Nervous system disorder [Unknown]
  - Pain [Unknown]

NARRATIVE: CASE EVENT DATE: 201501
